FAERS Safety Report 5607458-0 (Version None)
Quarter: 2008Q1

REPORT INFORMATION
  Report Type: 
  Country: None (occurrence: None)
  Receive Date: 20080130
  Receipt Date: 20080117
  Transmission Date: 20080703
  Serious: Yes (Hospitalization)
  Sender: FDA-Public Use
  Company Number: US-ELI_LILLY_AND_COMPANY-US200801002213

PATIENT
  Sex: Male

DRUGS (20)
  1. BYETTA [Suspect]
     Indication: DRUG USE FOR UNKNOWN INDICATION
     Dosage: 5 UG, 2/D
     Route: 058
     Dates: start: 20070601, end: 20070101
  2. BYETTA [Suspect]
     Dosage: 5 UG, 2/D
     Route: 058
     Dates: start: 20071017, end: 20071225
  3. LIPITOR [Concomitant]
     Dosage: 40 MG, EACH EVENING
     Route: 048
  4. PLAVIX [Concomitant]
     Dosage: 75 MG, DAILY (1/D)
     Route: 048
  5. SPIRONOLACTONE [Concomitant]
     Dosage: 25 MG, 2/D
     Route: 048
  6. FUROSEMIDE [Concomitant]
     Dosage: 40 MG, DAILY (1/D)
     Route: 048
  7. METFORMIN HCL [Concomitant]
     Dosage: 500 MG, 2/D
     Route: 048
  8. ZETIA [Concomitant]
     Dosage: 10 MG, DAILY (1/D)
     Route: 048
  9. PROTONIX [Concomitant]
     Dosage: 40 MG, 2/D
     Route: 048
  10. EFFEXOR XR [Concomitant]
     Dosage: 150 MG, DAILY (1/D)
     Route: 048
  11. MOBIC [Concomitant]
     Dosage: 15 MG, DAILY (1/D)
     Route: 048
  12. LISINOPRIL [Concomitant]
     Dosage: 40 MG, DAILY (1/D)
     Route: 048
  13. OXYCODONE [Concomitant]
     Dosage: 15 MG, EVERY 6 HRS
     Route: 048
  14. TIAZAC [Concomitant]
     Dosage: 180 MG, DAILY (1/D)
     Route: 048
  15. XANAX [Concomitant]
     Dosage: 0.5 MG, 3/D
     Route: 048
  16. GLYBURIDE [Concomitant]
     Dosage: 5 MG, DAILY (1/D)
     Route: 048
  17. ATENOLOL [Concomitant]
     Dosage: 100 MG, DAILY (1/D)
     Route: 065
  18. OXYIR [Concomitant]
     Dosage: 5 MG, EVERY 6 HRS
     Route: 048
  19. OXYCONTIN [Concomitant]
     Dosage: 80 MG, 2/D
     Route: 065
  20. ASPIRIN [Concomitant]
     Dosage: 325 MG, EACH MORNING
     Route: 065

REACTIONS (1)
  - PANCREATITIS [None]
